FAERS Safety Report 19641264 (Version 1)
Quarter: 2021Q3

REPORT INFORMATION
  Report Type: Report from Study
  Country: CA (occurrence: CA)
  Receive Date: 20210729
  Receipt Date: 20210729
  Transmission Date: 20211014
  Serious: Yes (Other)
  Sender: FDA-Public Use
  Company Number: CA-JNJFOC-20210742594

PATIENT
  Age: 66 Year
  Sex: Male
  Weight: 100 kg

DRUGS (1)
  1. ERLEADA [Suspect]
     Active Substance: APALUTAMIDE
     Indication: PROSTATE CANCER METASTATIC
     Route: 048
     Dates: start: 20200410, end: 20210719

REACTIONS (5)
  - Gait disturbance [Unknown]
  - Impaired work ability [Unknown]
  - Bone pain [Unknown]
  - Hypoaesthesia [Unknown]
  - Arthralgia [Unknown]
